FAERS Safety Report 10490690 (Version 1)
Quarter: 2014Q4

REPORT INFORMATION
  Report Type: Spontaneous
  Country: US (occurrence: US)
  Receive Date: 20141002
  Receipt Date: 20141002
  Transmission Date: 20150528
  Serious: No
  Sender: FDA-Public Use
  Company Number: US-GLAXOSMITHKLINE-A1040088A

PATIENT
  Sex: Female

DRUGS (5)
  1. PRAVASTATIN [Concomitant]
     Active Substance: PRAVASTATIN\PRAVASTATIN SODIUM
  2. METOPROLOL [Concomitant]
     Active Substance: METOPROLOL
  3. ALLOPURINOL. [Concomitant]
     Active Substance: ALLOPURINOL
  4. ADVAIR HFA [Suspect]
     Active Substance: FLUTICASONE PROPIONATE\SALMETEROL XINAFOATE
     Dosage: 2PUFF TWICE PER DAY
     Route: 055
     Dates: start: 20130809
  5. LORATADINE. [Concomitant]
     Active Substance: LORATADINE

REACTIONS (3)
  - Dysphonia [Recovered/Resolved]
  - Drug administration error [Unknown]
  - Bronchitis [Unknown]

NARRATIVE: CASE EVENT DATE: 20130809
